FAERS Safety Report 9749965 (Version 1)
Quarter: 2013Q4

REPORT INFORMATION
  Report Type: Report from Study
  Country: IL (occurrence: IL)
  Receive Date: 20131212
  Receipt Date: 20131212
  Transmission Date: 20140711
  Serious: Yes (Other)
  Sender: FDA-Public Use
  Company Number: PHHY2013IL144427

PATIENT
  Sex: 0

DRUGS (3)
  1. SANDOSTATIN LAR [Suspect]
     Dosage: MATERNAL DOSE: 30 MG, EVERY 28 DAYS
     Route: 064
  2. SANDOSTATIN LAR [Suspect]
     Dosage: MATERNAL DOSE: 30 MG, EVERY 28 DAYS
     Route: 064
  3. ELTROXIN [Concomitant]
     Dosage: MATERNAL DOSE: 100 MG
     Route: 064

REACTIONS (2)
  - Foetal growth restriction [Unknown]
  - Foetal exposure during pregnancy [Unknown]
